FAERS Safety Report 5036469-1 (Version None)
Quarter: 2006Q2

REPORT INFORMATION
  Report Type: 
  Country: None (occurrence: None)
  Receive Date: 20060628
  Receipt Date: 20060617
  Transmission Date: 20061013
  Serious: Yes (Hospitalization)
  Sender: FDA-Public Use
  Company Number: PHRM2006DZ01845

PATIENT
  Age: 60 Year
  Sex: Female

DRUGS (1)
  1. LAMISIL [Suspect]
     Route: 048

REACTIONS (4)
  - ABDOMINAL PAIN [None]
  - CHROMATURIA [None]
  - JAUNDICE [None]
  - MYALGIA [None]
